FAERS Safety Report 4612364-4 (Version None)
Quarter: 2005Q1

REPORT INFORMATION
  Report Type: 
  Country: None (occurrence: None)
  Receive Date: 20050316
  Receipt Date: 20050302
  Transmission Date: 20050727
  Serious: Yes (Other)
  Sender: FDA-Public Use
  Company Number: USA050392243

PATIENT
  Age: 57 Year
  Sex: Female

DRUGS (4)
  1. EVISTA [Suspect]
     Dosage: 60 MG DAY
     Dates: start: 20020701
  2. LEVOXYL [Concomitant]
  3. OGEN [Concomitant]
  4. PROMETRIUM [Concomitant]

REACTIONS (2)
  - CARCINOID TUMOUR OF THE APPENDIX [None]
  - ENDOMETRIAL CANCER STAGE I [None]
